FAERS Safety Report 14120882 (Version 5)
Quarter: 2020Q3

REPORT INFORMATION
  Report Type: Report from Study
  Country: None (occurrence: US)
  Receive Date: 20171024
  Receipt Date: 20200724
  Transmission Date: 20201102
  Serious: Yes (Other)
  Sender: FDA-Public Use
  Company Number: US-ABBVIE-17K-163-2029925-00

PATIENT
  Age: 78 Year
  Sex: Male

DRUGS (12)
  1. HUMIRA [Suspect]
     Active Substance: ADALIMUMAB
     Route: 058
     Dates: start: 202006
  2. TADALAFIL. [Concomitant]
     Active Substance: TADALAFIL
     Indication: SEXUAL DYSFUNCTION
  3. HUMIRA [Suspect]
     Active Substance: ADALIMUMAB
     Indication: CROHN^S DISEASE
     Route: 058
     Dates: start: 2005
  4. PREDNISONE. [Concomitant]
     Active Substance: PREDNISONE
     Indication: CROHN^S DISEASE
  5. TRIAMCINOLONE [Concomitant]
     Active Substance: TRIAMCINOLONE
     Indication: RASH
  6. FINASTERIDE. [Concomitant]
     Active Substance: FINASTERIDE
     Indication: URINARY INCONTINENCE
  7. AZITHROMYCIN ANHYDROUS. [Concomitant]
     Active Substance: AZITHROMYCIN ANHYDROUS
     Indication: PNEUMONIA
  8. CHOLESTYRAMINE. [Concomitant]
     Active Substance: CHOLESTYRAMINE
     Indication: CROHN^S DISEASE
  9. HUMIRA [Suspect]
     Active Substance: ADALIMUMAB
     Indication: CROHN^S DISEASE
     Route: 058
     Dates: start: 2007, end: 201910
  10. HUMIRA [Suspect]
     Active Substance: ADALIMUMAB
     Route: 058
     Dates: start: 201910, end: 202006
  11. IMODINE [Concomitant]
     Active Substance: LOPERAMIDE HYDROCHLORIDE
     Indication: DIARRHOEA
  12. ALBUTEROL. [Concomitant]
     Active Substance: ALBUTEROL
     Indication: ASTHENIA

REACTIONS (11)
  - Calculus bladder [Unknown]
  - Throat tightness [Recovered/Resolved]
  - Basal cell carcinoma [Recovered/Resolved]
  - Bladder neoplasm [Recovered/Resolved]
  - Oesophageal dilation procedure [Unknown]
  - Squamous cell carcinoma [Not Recovered/Not Resolved]
  - Bladder cancer [Recovering/Resolving]
  - Basosquamous carcinoma [Recovered/Resolved]
  - Urinary tract disorder [Unknown]
  - Dysphagia [Recovered/Resolved]
  - Basal cell carcinoma [Recovering/Resolving]

NARRATIVE: CASE EVENT DATE: 2010
